FAERS Safety Report 24462694 (Version 1)
Quarter: 2024Q4

REPORT INFORMATION
  Report Type: Spontaneous
  Country: US (occurrence: US)
  Receive Date: 20241018
  Receipt Date: 20241018
  Transmission Date: 20250114
  Serious: No
  Sender: TEVA
  Company Number: US-TEVA-VS-3249722

PATIENT

DRUGS (1)
  1. CEPHALEXIN [Suspect]
     Active Substance: CEPHALEXIN
     Indication: Gastrostomy tube site complication
     Dosage: 250/5 MG/ML
     Route: 048

REACTIONS (2)
  - Infection [Unknown]
  - Product use issue [Unknown]
